FAERS Safety Report 4311290-8 (Version None)
Quarter: 2004Q1

REPORT INFORMATION
  Report Type: 
  Country: None (occurrence: None)
  Receive Date: 20040304
  Receipt Date: 20031127
  Transmission Date: 20041129
  Serious: Yes (Hospitalization)
  Sender: FDA-Public Use
  Company Number: JP-GLAXOSMITHKLINE-B0316238A

PATIENT
  Age: 83 Year
  Sex: Female
  Weight: 39 kg

DRUGS (5)
  1. VALTREX [Suspect]
     Indication: HERPES ZOSTER
     Route: 048
     Dates: start: 20031122, end: 20031124
  2. LOXOPROFEN SODIUM [Suspect]
     Indication: COMPRESSION FRACTURE
     Route: 048
  3. SENNOSIDE [Concomitant]
     Indication: CONSTIPATION
     Dosage: 24MG PER DAY
     Route: 048
  4. SODIUM RABEPRAZOLE [Concomitant]
     Indication: REFLUX OESOPHAGITIS
     Dosage: 10MG PER DAY
     Route: 048
  5. ITOPRIDE HYDROCHLORIDE [Concomitant]
     Indication: REFLUX OESOPHAGITIS
     Dosage: 150MG PER DAY
     Route: 048

REACTIONS (12)
  - ANOREXIA [None]
  - BLOOD ALBUMIN DECREASED [None]
  - BLOOD ELECTROLYTES ABNORMAL [None]
  - BLOOD POTASSIUM DECREASED [None]
  - HEADACHE [None]
  - NAUSEA [None]
  - PALPITATIONS [None]
  - PROTEIN TOTAL DECREASED [None]
  - RENAL FAILURE ACUTE [None]
  - SENSATION OF BLOCK IN EAR [None]
  - URINE OUTPUT DECREASED [None]
  - VOMITING [None]
